FAERS Safety Report 10145141 (Version 1)
Quarter: 2014Q2

REPORT INFORMATION
  Report Type: Spontaneous
  Country: US (occurrence: US)
  Receive Date: 20140501
  Receipt Date: 20140501
  Transmission Date: 20141212
  Serious: No
  Sender: FDA-Public Use
  Company Number: US-BIOGENIDEC-2014BI040308

PATIENT
  Age: 53 Year
  Sex: Female

DRUGS (18)
  1. AVONEX [Suspect]
     Indication: MULTIPLE SCLEROSIS
     Route: 030
     Dates: start: 20120312
  2. BACLOFEN [Concomitant]
  3. COLON CLEANSER [Concomitant]
  4. EFFEXOR XR [Concomitant]
  5. GABAPENTIN [Concomitant]
  6. HYDROCHLOROTHIAZIDE [Concomitant]
  7. KLOR-CON [Concomitant]
  8. LEVOTHYROXINE SODIUM [Concomitant]
  9. OXYBUTYNIN CHLORIDE [Concomitant]
  10. PANTOPRAZOLE SODIUM [Concomitant]
  11. POTASSIUM CHLORIDE ER [Concomitant]
  12. ROPINIROLE HCL [Concomitant]
  13. VENLAFAXINE HCL [Concomitant]
  14. VITAMIN D3 [Concomitant]
  15. WARFARIN [Concomitant]
  16. FISH OIL [Concomitant]
  17. NALTREXONE HCL [Concomitant]
  18. WOMEN ONE DAILY [Concomitant]

REACTIONS (2)
  - Amnesia [Unknown]
  - Confusional state [Unknown]
